FAERS Safety Report 9528007 (Version 1)
Quarter: 2013Q1

REPORT INFORMATION
  Report Type: Spontaneous
  Country: US (occurrence: None)
  Receive Date: 20130313
  Receipt Date: 20130313
  Transmission Date: 20140127
  Serious: Yes (Other)
  Sender: FDA-Public Use
  Company Number: 1000028661

PATIENT
  Sex: Female

DRUGS (1)
  1. SAVELLA [Suspect]
     Indication: CYSTITIS INTERSTITIAL
     Dosage: 12.5 MG (12.5 MG,1 IN 1 D),ORAL
     Route: 048

REACTIONS (2)
  - Hypomania [None]
  - Off label use [None]
